FAERS Safety Report 9932599 (Version 1)
Quarter: 2014Q1

REPORT INFORMATION
  Report Type: Spontaneous
  Country: US (occurrence: US)
  Receive Date: 20140228
  Receipt Date: 20140228
  Transmission Date: 20141002
  Serious: No
  Sender: FDA-Public Use
  Company Number: US-GLAXOSMITHKLINE-A1022395A

PATIENT
  Age: 15 Year
  Sex: Female
  Weight: 50 kg

DRUGS (5)
  1. LAMICTAL [Suspect]
     Indication: PRODUCT USED FOR UNKNOWN INDICATION
     Dosage: 25MGD PER DAY
     Route: 048
  2. ZOLOFT [Concomitant]
  3. LOESTRIN [Concomitant]
  4. MOTRIN [Concomitant]
  5. MELATONIN [Concomitant]

REACTIONS (2)
  - Rash [Recovered/Resolved]
  - Urticaria [Recovered/Resolved]
